FAERS Safety Report 12176997 (Version 1)
Quarter: 2016Q1

REPORT INFORMATION
  Report Type: Report from Study
  Country: CA (occurrence: CA)
  Receive Date: 20160314
  Receipt Date: 20160314
  Transmission Date: 20160526
  Serious: Yes (Other)
  Sender: FDA-Public Use
  Company Number: PHHY2016CA030919

PATIENT
  Sex: Female

DRUGS (1)
  1. DESFERAL [Suspect]
     Active Substance: DEFEROXAMINE MESYLATE
     Indication: IRON OVERLOAD
     Route: 042
     Dates: start: 201504, end: 201602

REACTIONS (3)
  - Infusion site abscess [Unknown]
  - Rash [Unknown]
  - Abdominal abscess [Unknown]
